FAERS Safety Report 5777114-7 (Version None)
Quarter: 2008Q2

REPORT INFORMATION
  Report Type: 
  Country: None (occurrence: None)
  Receive Date: 20080617
  Receipt Date: 20080617
  Transmission Date: 20081010
  Serious: Yes (Hospitalization)
  Sender: FDA-Public Use
  Company Number: None

PATIENT
  Age: 20 Year
  Sex: Male
  Weight: 60 kg

DRUGS (7)
  1. FLUOROURACIL [Suspect]
     Indication: NEOPLASM MALIGNANT
     Dates: start: 20080415, end: 20080418
  2. PANCRELIPASE [Concomitant]
  3. OCTREOTIDE ACETATE [Concomitant]
  4. ONDANSETRON [Concomitant]
  5. LOPERAMIDE HCL [Concomitant]
  6. OXALIPLATIN [Concomitant]
  7. LORAZEPAM [Concomitant]

REACTIONS (3)
  - ABDOMINAL PAIN [None]
  - DIARRHOEA [None]
  - VOMITING [None]
